FAERS Safety Report 9806536 (Version 1)
Quarter: 2014Q1

REPORT INFORMATION
  Report Type: Spontaneous
  Country: US (occurrence: US)
  Receive Date: 20140109
  Receipt Date: 20140109
  Transmission Date: 20141002
  Serious: Yes (Death)
  Sender: FDA-Public Use
  Company Number: US-PFIZER INC-2014006399

PATIENT
  Age: 39 Year
  Sex: Female

DRUGS (1)
  1. DOXEPIN HCL [Suspect]
     Dosage: UNK

REACTIONS (1)
  - Completed suicide [Fatal]
